FAERS Safety Report 12505581 (Version 1)
Quarter: 2016Q2

REPORT INFORMATION
  Report Type: Spontaneous
  Country: US (occurrence: US)
  Receive Date: 20160628
  Receipt Date: 20160628
  Transmission Date: 20160815
  Serious: Yes (Death, Life-Threatening, Hospitalization, Other)
  Sender: FDA-Public Use
  Company Number: US-BAYER-2016-120968

PATIENT
  Age: 64 Year
  Sex: Female

DRUGS (2)
  1. ADEMPAS [Suspect]
     Active Substance: RIOCIGUAT
     Indication: PULMONARY HYPERTENSION
     Dosage: 0.5 MG, TID
     Route: 048
     Dates: start: 20160120
  2. PRADAXA [Concomitant]
     Active Substance: DABIGATRAN ETEXILATE MESYLATE

REACTIONS (8)
  - Respiratory failure [None]
  - Cardiac arrest [None]
  - Myocardial ischaemia [None]
  - Multiple organ dysfunction syndrome [None]
  - Pulmonary oedema [None]
  - Aspiration [None]
  - Acute kidney injury [None]
  - Cardiac arrest [Fatal]

NARRATIVE: CASE EVENT DATE: 20160604
